FAERS Safety Report 18901746 (Version 1)
Quarter: 2021Q1

REPORT INFORMATION
  Report Type: Other
  Country: CN (occurrence: CN)
  Receive Date: 20210217
  Receipt Date: 20210217
  Transmission Date: 20210420
  Serious: Yes (Other)
  Sender: FDA-Public Use
  Company Number: CN-ROCHE-2765691

PATIENT
  Sex: Female

DRUGS (4)
  1. PACLITAXEL ALBUMIN [Suspect]
     Active Substance: PACLITAXEL
     Indication: HER2 POSITIVE BREAST CANCER
     Route: 042
  2. PACLITAXEL. [Suspect]
     Active Substance: PACLITAXEL
     Indication: HER2 POSITIVE BREAST CANCER
     Route: 042
  3. TRASTUZUMAB. [Suspect]
     Active Substance: TRASTUZUMAB
     Indication: HER2 POSITIVE BREAST CANCER
     Dosage: 3?WEEK REGIMEN (8MG/KG FOR THE FIRST TIME, 6MG/KG EACH TIME) OR A WEEKLY REGIMEN (4MG/KG FOR THE FIR
     Route: 065
  4. CARBOPLATIN. [Suspect]
     Active Substance: CARBOPLATIN
     Indication: HER2 POSITIVE BREAST CANCER
     Dosage: AUC?2 BY INTRAVENOUS INJECTION, ON DAY 1,8,15, 28 DAYS AS 1 CYCLE OR 175MG/M2 BY INTRAVENOUS INJECTI
     Route: 042

REACTIONS (7)
  - Cardiotoxicity [Unknown]
  - Gastrointestinal disorder [Unknown]
  - Alopecia [Unknown]
  - Stomatitis [Unknown]
  - Hypersensitivity [Unknown]
  - White blood cell count decreased [Unknown]
  - Platelet count decreased [Unknown]
